FAERS Safety Report 13290188 (Version 1)
Quarter: 2017Q1

REPORT INFORMATION
  Report Type: Spontaneous
  Country: KR (occurrence: KR)
  Receive Date: 20170303
  Receipt Date: 20170303
  Transmission Date: 20170428
  Serious: Yes (Death, Hospitalization, Other)
  Sender: FDA-Public Use
  Company Number: KR-ROCHE-1899795

PATIENT
  Age: 34 Year

DRUGS (1)
  1. TAMIFLU [Suspect]
     Active Substance: OSELTAMIVIR PHOSPHATE
     Indication: INFLUENZA
     Route: 048

REACTIONS (6)
  - Cardiac arrest [Fatal]
  - Gait disturbance [Unknown]
  - Ileus [Recovering/Resolving]
  - Pneumonia aspiration [Unknown]
  - Septic shock [Unknown]
  - Guillain-Barre syndrome [Unknown]

NARRATIVE: CASE EVENT DATE: 20110114
